FAERS Safety Report 4307042-5 (Version None)
Quarter: 2004Q1

REPORT INFORMATION
  Report Type: 
  Country: None (occurrence: None)
  Receive Date: 20040227
  Receipt Date: 20040223
  Transmission Date: 20041129
  Serious: Yes (Other)
  Sender: FDA-Public Use
  Company Number: JP-ROCHE-359455

PATIENT
  Age: 64 Year
  Sex: Female

DRUGS (2)
  1. NICARDIPINE HCL [Suspect]
     Indication: DRUG USE FOR UNKNOWN INDICATION
     Route: 042
  2. MILLISROL [Concomitant]
     Route: 042

REACTIONS (1)
  - ILEUS [None]
